FAERS Safety Report 16295349 (Version 1)
Quarter: 2019Q2

REPORT INFORMATION
  Report Type: Spontaneous
  Country: US (occurrence: US)
  Receive Date: 20190404
  Receipt Date: 20190404
  Transmission Date: 20190711
  Serious: Yes (Death)
  Sender: FDA-Public Use
  Company Number: None

PATIENT
  Age: 68 Year
  Sex: Male

DRUGS (1)
  1. HUMIRA [Suspect]
     Active Substance: ADALIMUMAB
     Indication: PSORIASIS
     Dosage: 40MG/0.8ML EVERY OTHER WEEK SUBQ
     Route: 058
     Dates: start: 20151203, end: 20190225

REACTIONS (1)
  - Death [None]

NARRATIVE: CASE EVENT DATE: 20190225
